FAERS Safety Report 5307367-0 (Version None)
Quarter: 2007Q1

REPORT INFORMATION
  Report Type: 
  Country: None (occurrence: None)
  Receive Date: 20070201
  Receipt Date: 20061209
  Transmission Date: 20070707
  Serious: No
  Sender: FDA-Public Use
  Company Number: 2006PV026676

PATIENT
  Age: 59 Year
  Sex: Male
  Weight: 124.7392 kg

DRUGS (3)
  1. BYETTA [Suspect]
     Indication: DIABETES MELLITUS NON-INSULIN-DEPENDENT
     Dosage: 5 MCG; BID; SC
     Route: 058
     Dates: start: 20061101
  2. METFORMIN (2500 MG) [Suspect]
     Indication: DIABETES MELLITUS NON-INSULIN-DEPENDENT
     Dosage: 2500 MG; BID;
     Dates: start: 20061101, end: 20061212
  3. METFORMIN HCL [Concomitant]

REACTIONS (6)
  - ABNORMAL DREAMS [None]
  - CONSTIPATION [None]
  - DECREASED APPETITE [None]
  - DRUG EFFECT DECREASED [None]
  - ENERGY INCREASED [None]
  - WEIGHT DECREASED [None]
